FAERS Safety Report 20102480 (Version 1)
Quarter: 2021Q4

REPORT INFORMATION
  Report Type: Spontaneous
  Country: FR (occurrence: None)
  Receive Date: 20211123
  Receipt Date: 20211123
  Transmission Date: 20220303
  Serious: Yes (Hospitalization)
  Sender: FDA-Public Use
  Company Number: 2021A806461

PATIENT
  Age: 79 Year
  Sex: Female

DRUGS (1)
  1. IMFINZI [Suspect]
     Active Substance: DURVALUMAB
     Indication: Endometrial adenocarcinoma
     Route: 042
     Dates: start: 20210920, end: 20211004

REACTIONS (3)
  - Muscular weakness [Not Recovered/Not Resolved]
  - Myocarditis [Not Recovered/Not Resolved]
  - Myositis [Not Recovered/Not Resolved]

NARRATIVE: CASE EVENT DATE: 20211001
